FAERS Safety Report 9251442 (Version 1)
Quarter: 2013Q1

REPORT INFORMATION
  Report Type: Spontaneous
  Country: US (occurrence: None)
  Receive Date: 20130305
  Receipt Date: 20130305
  Transmission Date: 20140127
  Serious: Yes (Other)
  Sender: FDA-Public Use
  Company Number: 163-21880-12060240 (0)

PATIENT
  Age: 90 Year
  Sex: Female
  Weight: 56.7 kg

DRUGS (9)
  1. REVLIMID [Suspect]
     Indication: MYELODYSPLASTIC SYNDROME
     Route: 048
     Dates: start: 20120113
  2. ATENOLOL (ATENOLOL) [Concomitant]
  3. ASPIRIN (ACETYLALICLIC ACID) [Concomitant]
  4. DIPYRIDAMOLE (DIPYRIDAMOLE) [Concomitant]
  5. TUMS (CALCIUM CARBONATE) [Concomitant]
  6. LISINOPRIL-HCTZ (ZESTORETIC) [Concomitant]
  7. DULCOLAX (BISACODYL) [Concomitant]
  8. VITAMIN  D (ERGOCALCIFEROL) [Concomitant]
  9. VITAMINS [Concomitant]

REACTIONS (4)
  - Red blood cell count decreased [None]
  - Dyspnoea [None]
  - Diarrhoea [None]
  - Muscle spasms [None]
